FAERS Safety Report 5944657-2 (Version None)
Quarter: 2008Q4

REPORT INFORMATION
  Report Type: 
  Country: None (occurrence: None)
  Receive Date: 20081105
  Receipt Date: 20081021
  Transmission Date: 20090506
  Serious: Yes (Hospitalization, Disabling)
  Sender: FDA-Public Use
  Company Number: TRP_02209_2008

PATIENT
  Sex: Male
  Weight: 90.6 kg

DRUGS (12)
  1. ADVAFERON [Suspect]
     Indication: HEPATITIS C
     Dosage: (12 MILLION IU QD SUBCUTANEOUS), (12 MILLION IU 3X/WEEK SUBCUTANEOUS)
     Route: 058
     Dates: start: 20020514, end: 20020528
  2. ADVAFERON [Suspect]
     Indication: HEPATITIS C
     Dosage: (12 MILLION IU QD SUBCUTANEOUS), (12 MILLION IU 3X/WEEK SUBCUTANEOUS)
     Route: 058
     Dates: start: 20020529, end: 20020729
  3. LEVOTHYROXINE SODIUM [Concomitant]
  4. AMARYL [Concomitant]
  5. CALSLOT [Concomitant]
  6. LASIX [Concomitant]
  7. BAYCARON [Concomitant]
  8. NU-LOTAN [Concomitant]
  9. ALDOMET /00000101/ [Concomitant]
  10. AMIYU /00749601/ [Concomitant]
  11. EPOGIN [Concomitant]
  12. ADALAT [Concomitant]

REACTIONS (11)
  - BLINDNESS [None]
  - CRANIAL NERVE DISORDER [None]
  - DEMYELINATION [None]
  - DIARRHOEA [None]
  - DIZZINESS [None]
  - HEADACHE [None]
  - NUCLEAR MAGNETIC RESONANCE IMAGING BRAIN ABNORMAL [None]
  - PYREXIA [None]
  - VISION BLURRED [None]
  - VISUAL PATHWAY DISORDER [None]
  - WHITE BLOOD CELL COUNT DECREASED [None]
